FAERS Safety Report 5939993-X (Version None)
Quarter: 2008Q4

REPORT INFORMATION
  Report Type: 
  Country: None (occurrence: None)
  Receive Date: 20081104
  Receipt Date: 20081028
  Transmission Date: 20090506
  Serious: Yes (Death)
  Sender: FDA-Public Use
  Company Number: US-ROCHE-589097

PATIENT
  Sex: Female
  Weight: 51.7 kg

DRUGS (1)
  1. CAPECITABINE [Suspect]
     Indication: COLORECTAL CANCER
     Dosage: STRENGTH: 500 MG AND 150MG
     Route: 048
     Dates: start: 20080710

REACTIONS (1)
  - RENAL FAILURE [None]
